FAERS Safety Report 16272138 (Version 3)
Quarter: 2021Q3

REPORT INFORMATION
  Report Type: Spontaneous
  Country: US (occurrence: US)
  Receive Date: 20190503
  Receipt Date: 20210721
  Transmission Date: 20211014
  Serious: Yes (Hospitalization, Other)
  Sender: FDA-Public Use
  Company Number: US-ASTRAZENECA-2019SE57969

PATIENT
  Age: 23432 Day
  Sex: Male
  Weight: 132 kg

DRUGS (22)
  1. FINASTERIDE. [Concomitant]
     Active Substance: FINASTERIDE
  2. ZETIA [Concomitant]
     Active Substance: EZETIMIBE
  3. ENALAPRIL [Concomitant]
     Active Substance: ENALAPRIL
     Indication: HYPERTENSION
     Route: 065
     Dates: start: 20100301, end: 20100911
  4. GABAPENTIN. [Concomitant]
     Active Substance: GABAPENTIN
  5. EZETIMIBE. [Concomitant]
     Active Substance: EZETIMIBE
  6. SILDENAFIL. [Concomitant]
     Active Substance: SILDENAFIL
  7. TRAMADOL. [Concomitant]
     Active Substance: TRAMADOL
  8. NEXIUM 24HR [Suspect]
     Active Substance: ESOMEPRAZOLE MAGNESIUM
     Indication: GASTROOESOPHAGEAL REFLUX DISEASE
     Route: 048
     Dates: start: 2014, end: 2017
  9. NITROGLYCERIN. [Concomitant]
     Active Substance: NITROGLYCERIN
  10. HUMALOG [Concomitant]
     Active Substance: INSULIN LISPRO
  11. FUROSEMIDE. [Concomitant]
     Active Substance: FUROSEMIDE
  12. NEXIUM [Suspect]
     Active Substance: ESOMEPRAZOLE MAGNESIUM
     Indication: GASTROOESOPHAGEAL REFLUX DISEASE
     Route: 048
     Dates: start: 20100109, end: 20170303
  13. AVANDAMET [Concomitant]
     Active Substance: METFORMIN HYDROCHLORIDE\ROSIGLITAZONE MALEATE
     Indication: DIABETES MELLITUS
     Route: 065
     Dates: start: 20100119, end: 20100809
  14. FEXOFENADINE [Concomitant]
     Active Substance: FEXOFENADINE HYDROCHLORIDE
     Indication: URTICARIA
     Route: 065
     Dates: start: 20100310, end: 20110122
  15. ALLOPURINOL. [Concomitant]
     Active Substance: ALLOPURINOL
  16. ERYTHROMYCIN. [Concomitant]
     Active Substance: ERYTHROMYCIN
  17. HYDROCHLOROTHIAZIDE. [Concomitant]
     Active Substance: HYDROCHLOROTHIAZIDE
  18. METOPROLOL. [Concomitant]
     Active Substance: METOPROLOL
     Indication: HYPERTENSION
     Route: 065
     Dates: start: 20100201, end: 20180305
  19. TADALAFIL. [Concomitant]
     Active Substance: TADALAFIL
  20. NOVOLOG [Concomitant]
     Active Substance: INSULIN ASPART
  21. RANOLAZINE. [Concomitant]
     Active Substance: RANOLAZINE
  22. CHOLECALCIFEROL [Concomitant]
     Active Substance: CHOLECALCIFEROL

REACTIONS (3)
  - Renal failure [Unknown]
  - Chronic kidney disease [Not Recovered/Not Resolved]
  - Nephrogenic anaemia [Unknown]

NARRATIVE: CASE EVENT DATE: 20120111
